FAERS Safety Report 13446438 (Version 1)
Quarter: 2017Q2

REPORT INFORMATION
  Report Type: Spontaneous
  Country: US (occurrence: US)
  Receive Date: 20170417
  Receipt Date: 20170417
  Transmission Date: 20170830
  Serious: Yes (Other)
  Sender: FDA-Public Use
  Company Number: US-ACCORD-047219

PATIENT
  Sex: Female

DRUGS (1)
  1. SIMVASTATIN ACCORD [Suspect]
     Active Substance: SIMVASTATIN
     Indication: PRODUCT USED FOR UNKNOWN INDICATION
     Dosage: STRENGTH: 20 MG?TAKING THIS MEDICATION FOR 3 YEARS AT NIGHT

REACTIONS (2)
  - Swollen tongue [Unknown]
  - Hypersensitivity [Unknown]
